FAERS Safety Report 7402240-6 (Version None)
Quarter: 2011Q2

REPORT INFORMATION
  Report Type: 
  Country: None (occurrence: None)
  Receive Date: 20110401
  Receipt Date: 20110318
  Transmission Date: 20111010
  Serious: Yes (Death)
  Sender: FDA-Public Use
  Company Number: LTI2008A00024

PATIENT
  Age: 73 Year
  Sex: Female

DRUGS (5)
  1. ATENOLOL [Suspect]
     Dosage: ORAL
     Route: 048
     Dates: start: 20040101
  2. PLAVIX [Suspect]
     Dosage: (1 IN 1 D) BU
     Route: 002
     Dates: start: 20040101
  3. INSULIN [Suspect]
     Indication: TYPE 1 DIABETES MELLITUS
     Dosage: ORAL
     Route: 048
     Dates: start: 19940101
  4. IRBESARTAN AND HYDROCHLOROTHIAZIDE [Suspect]
     Dosage: 1 DF (1 DF) ORAL
     Route: 048
     Dates: start: 20070101
  5. ACTOS [Suspect]
     Indication: TYPE 1 DIABETES MELLITUS
     Dosage: 15 MG (15 MG,1 IN 1 D) ORAL
     Route: 048
     Dates: start: 20070827, end: 20071011

REACTIONS (10)
  - LEFT VENTRICULAR HYPERTROPHY [None]
  - OEDEMA PERIPHERAL [None]
  - SUDDEN DEATH [None]
  - BLOOD CREATINE INCREASED [None]
  - WEIGHT INCREASED [None]
  - DYSPNOEA [None]
  - DIABETES MELLITUS INADEQUATE CONTROL [None]
  - COUGH [None]
  - AORTIC VALVE SCLEROSIS [None]
  - MITRAL VALVE SCLEROSIS [None]
